FAERS Safety Report 9330496 (Version 5)
Quarter: 2013Q3

REPORT INFORMATION
  Report Type: Spontaneous
  Country: US (occurrence: US)
  Receive Date: 20130605
  Receipt Date: 20130816
  Transmission Date: 20140515
  Serious: Yes (Hospitalization, Other)
  Sender: FDA-Public Use
  Company Number: US-009507513-1306USA001536

PATIENT
  Age: 45 Year
  Sex: Female
  Weight: 71.66 kg

DRUGS (10)
  1. PEG-INTRON [Suspect]
     Indication: HEPATITIS C
     Dosage: 0.5 ML, QW, REDIPEN 120 MCG(4SYR), 120MCG/0.5 ML
     Route: 058
     Dates: start: 20130530
  2. PEG-INTRON [Suspect]
     Dosage: 0.5 ML, QW, REDIPEN 120 MCG(4SYR), 120MCG/0.5 ML
     Route: 058
  3. RIBAPAK [Suspect]
     Dosage: 1000 MG, QD
     Route: 048
  4. INCIVEK [Suspect]
     Dosage: 375 MG, UNK
     Route: 048
  5. PROTONIX [Concomitant]
     Dosage: 40 MG, UNK
     Route: 048
  6. IMITREX (SUMATRIPTAN) [Concomitant]
     Indication: MIGRAINE
     Dosage: 50 MG, UNK
     Route: 048
  7. PERCOCET [Concomitant]
     Indication: MIGRAINE
     Dosage: 10-325MG
     Route: 048
  8. AMITRIPTYLIN [Concomitant]
     Dosage: 100 MG, UNK
     Route: 048
  9. PHENERGAN (PROMETHAZINE HYDROCHLORIDE) [Concomitant]
     Dosage: 50 MG, UNK
     Route: 054
  10. BENADRYL [Concomitant]
     Dosage: 1-0.1%

REACTIONS (24)
  - Cholecystectomy [Unknown]
  - Nausea [Unknown]
  - Vomiting [Unknown]
  - Crying [Not Recovered/Not Resolved]
  - Emotional disorder [Not Recovered/Not Resolved]
  - Red blood cell count decreased [Unknown]
  - Rash pruritic [Unknown]
  - Nausea [Unknown]
  - Headache [Unknown]
  - Cough [Unknown]
  - Influenza like illness [Unknown]
  - Pruritus [Unknown]
  - Fatigue [Not Recovered/Not Resolved]
  - White blood cell count decreased [Unknown]
  - Liquid product physical issue [Unknown]
  - Nausea [Unknown]
  - Vomiting [Unknown]
  - Abdominal pain upper [Unknown]
  - Dyspnoea [Unknown]
  - Hiatus hernia [Unknown]
  - Faeces discoloured [Unknown]
  - Abnormal faeces [Unknown]
  - Rash [Unknown]
  - Fatigue [Unknown]
